FAERS Safety Report 17037898 (Version 1)
Quarter: 2019Q4

REPORT INFORMATION
  Report Type: Spontaneous
  Country: DE (occurrence: DE)
  Receive Date: 20191115
  Receipt Date: 20191115
  Transmission Date: 20200122
  Serious: Yes (Death, Hospitalization)
  Sender: FDA-Public Use
  Company Number: DE-TEVA-2019-DE-1116120

PATIENT
  Age: 76 Year
  Sex: Female

DRUGS (6)
  1. LEVETIRACETAM. [Concomitant]
     Active Substance: LEVETIRACETAM
     Dosage: UNKNOWN FORM STRENGTH
  2. SOLIFENACIN-RATIOPHARM 5 MG FILMTABLETTEN [Suspect]
     Active Substance: SOLIFENACIN
     Indication: MICTURITION URGENCY
     Dosage: 1-0-0
     Route: 048
     Dates: start: 20190828, end: 20190906
  3. MAGNESIUM 400 [Concomitant]
  4. METOPROLOLSUCCINAT 47,5 MG TABLETTEN [Concomitant]
     Dosage: 1-0-1
  5. LIXIANA 60 MG TABLETTEN [Concomitant]
     Dosage: 1-0-0
  6. SIMVASTATIN 40 MG TABLETTEN [Concomitant]
     Dosage: 0-0-1

REACTIONS (26)
  - Dysphonia [Not Recovered/Not Resolved]
  - Nausea [Not Recovered/Not Resolved]
  - Heart rate irregular [Unknown]
  - Gait inability [Unknown]
  - Renal disorder [Unknown]
  - Visual impairment [Not Recovered/Not Resolved]
  - Drug interaction [Unknown]
  - Dry throat [Not Recovered/Not Resolved]
  - Abdominal discomfort [Not Recovered/Not Resolved]
  - Medical induction of coma [Unknown]
  - Dizziness [Not Recovered/Not Resolved]
  - Constipation [Unknown]
  - Eructation [Not Recovered/Not Resolved]
  - Partial seizures [Unknown]
  - Cough [Not Recovered/Not Resolved]
  - Aphonia [Not Recovered/Not Resolved]
  - Palpitations [Not Recovered/Not Resolved]
  - Urethral discharge [Not Recovered/Not Resolved]
  - Oedema peripheral [Unknown]
  - Pulmonary oedema [Unknown]
  - Liver disorder [Unknown]
  - Decreased appetite [Not Recovered/Not Resolved]
  - Urine flow decreased [Not Recovered/Not Resolved]
  - Cardiac failure [Unknown]
  - Endotracheal intubation [Unknown]
  - Death [Fatal]

NARRATIVE: CASE EVENT DATE: 20191103
